FAERS Safety Report 15374257 (Version 1)
Quarter: 2018Q3

REPORT INFORMATION
  Report Type: Report from Study
  Country: None (occurrence: BR)
  Receive Date: 20180912
  Receipt Date: 20180912
  Transmission Date: 20181010
  Serious: Yes (Other)
  Sender: FDA-Public Use
  Company Number: BR-ABBVIE-18K-020-2477577-00

PATIENT
  Sex: Female
  Weight: 50 kg

DRUGS (8)
  1. VITAMIN D [Concomitant]
     Active Substance: CHOLECALCIFEROL
     Indication: VITAMIN SUPPLEMENTATION
     Dosage: 3 OR 4 DROPS PER DAY
  2. PRESS PLUS [Concomitant]
     Indication: HYPERTENSION
     Dosage: 2.5/10 MILLIGRAM
  3. HUMIRA [Suspect]
     Active Substance: ADALIMUMAB
     Indication: RHEUMATOID ARTHRITIS
     Route: 058
     Dates: start: 20080101, end: 2014
  4. CELEBRA [Concomitant]
     Active Substance: CELECOXIB
     Indication: ARTHRITIS
  5. HUMIRA [Suspect]
     Active Substance: ADALIMUMAB
     Route: 058
  6. METHOTREXATE. [Concomitant]
     Active Substance: METHOTREXATE
     Indication: RHEUMATOID ARTHRITIS
  7. CELEBRA [Concomitant]
     Active Substance: CELECOXIB
     Indication: PAIN
  8. PREDNISONE. [Concomitant]
     Active Substance: PREDNISONE
     Indication: RHEUMATOID ARTHRITIS

REACTIONS (17)
  - Morton^s neuralgia [Recovered/Resolved]
  - Bone decalcification [Recovering/Resolving]
  - Tendon injury [Unknown]
  - Musculoskeletal disorder [Unknown]
  - Foot fracture [Recovering/Resolving]
  - Pleural effusion [Not Recovered/Not Resolved]
  - Cough [Recovered/Resolved]
  - Rhinitis allergic [Not Recovered/Not Resolved]
  - Nodule [Recovering/Resolving]
  - Cough [Recovered/Resolved]
  - Inflammation [Recovered/Resolved]
  - Tendon pain [Recovering/Resolving]
  - Hypertension [Recovered/Resolved]
  - Tendonitis [Recovering/Resolving]
  - Mobility decreased [Recovering/Resolving]
  - Scar [Not Recovered/Not Resolved]
  - Hypoaesthesia [Not Recovered/Not Resolved]

NARRATIVE: CASE EVENT DATE: 2008
